FAERS Safety Report 4608971-5 (Version None)
Quarter: 2005Q1

REPORT INFORMATION
  Report Type: 
  Country: None (occurrence: None)
  Receive Date: 20050315
  Receipt Date: 20040708
  Transmission Date: 20050727
  Serious: Yes (Death, Life-Threatening)
  Sender: FDA-Public Use
  Company Number: BR-BRISTOL-MYERS SQUIBB COMPANY-12637468

PATIENT
  Age: 38 Year
  Sex: Male

DRUGS (14)
  1. ATAZANAVIR [Suspect]
     Indication: HIV INFECTION
     Dosage: THERAPY INTERRUPTED 6/28/04
     Route: 048
     Dates: start: 20040302, end: 20040628
  2. DIDANOSINE [Concomitant]
     Indication: HIV INFECTION
     Dosage: ONCE DAILY
     Dates: start: 20040302, end: 20040628
  3. TENOFOVIR [Concomitant]
     Indication: HIV INFECTION
     Dosage: ONCE DAILY
     Dates: start: 20040302, end: 20040628
  4. LAMIVUDINE [Concomitant]
     Indication: HIV INFECTION
     Dosage: ONCE DAILY
     Dates: start: 20040302, end: 20040628
  5. RITONAVIR [Concomitant]
     Indication: HIV INFECTION
     Dates: start: 20030822, end: 20040628
  6. DAPSONE [Concomitant]
     Dates: end: 20040628
  7. PYRIMETHAMINE [Concomitant]
     Dates: end: 20040628
  8. GLIBENCLAMIDE [Concomitant]
     Dates: end: 20040628
  9. BEZAFIBRATE [Concomitant]
     Dates: end: 20040628
  10. FLUCONAZOLE [Concomitant]
     Dates: end: 20040628
  11. ATENOLOL [Concomitant]
     Dates: end: 20040628
  12. LOMOTIL [Concomitant]
     Dates: end: 20040628
  13. CIMETIDINE [Concomitant]
     Dates: end: 20040628
  14. HALOPERIDOL [Concomitant]
     Dates: end: 20040628

REACTIONS (12)
  - ATRIAL FIBRILLATION [None]
  - BRONCHOPNEUMONIA [None]
  - CARDIAC ARREST [None]
  - CARDIOMEGALY [None]
  - COMA [None]
  - CONVULSION [None]
  - DEPRESSED LEVEL OF CONSCIOUSNESS [None]
  - DIABETIC KETOACIDOSIS [None]
  - DYSPNOEA [None]
  - HYPERHIDROSIS [None]
  - RESPIRATORY FAILURE [None]
  - SEPTIC SHOCK [None]
